FAERS Safety Report 5254606-0 (Version None)
Quarter: 2007Q1

REPORT INFORMATION
  Report Type: 
  Country: None (occurrence: None)
  Receive Date: 20070302
  Receipt Date: 20070221
  Transmission Date: 20070707
  Serious: Yes (Other)
  Sender: FDA-Public Use
  Company Number: US-PFIZER INC-2007014314

PATIENT
  Sex: Female

DRUGS (7)
  1. NEURONTIN [Suspect]
  2. LYRICA [Interacting]
     Indication: ENDOMETRIOSIS
  3. OXYCONTIN [Suspect]
     Dates: start: 20060101, end: 20061101
  4. FENTANYL [Interacting]
     Dates: start: 20061101, end: 20061101
  5. VICODIN [Suspect]
  6. MILK OF MAGNESIA [Concomitant]
  7. MIRALAX [Concomitant]

REACTIONS (6)
  - ANAPHYLACTIC REACTION [None]
  - COLONIC STENOSIS [None]
  - CONSTIPATION [None]
  - DRUG INTERACTION [None]
  - UNEVALUABLE EVENT [None]
  - WEIGHT DECREASED [None]
